FAERS Safety Report 19087487 (Version 1)
Quarter: 2021Q2

REPORT INFORMATION
  Report Type: Spontaneous
  Country: US (occurrence: US)
  Receive Date: 20210402
  Receipt Date: 20210402
  Transmission Date: 20210717
  Serious: No
  Sender: FDA-Public Use
  Company Number: US-INTERSECT ENT, INC.-2108844

PATIENT
  Age: 56 Year
  Sex: Male

DRUGS (1)
  1. SINUVA [Suspect]
     Active Substance: MOMETASONE FUROATE
     Indication: SINUSITIS
     Route: 006

REACTIONS (5)
  - Sleep terror [None]
  - Neck pain [None]
  - Insomnia [None]
  - Anxiety [None]
  - Abnormal dreams [None]
